FAERS Safety Report 23104923 (Version 2)
Quarter: 2023Q4

REPORT INFORMATION
  Report Type: Spontaneous
  Country: US (occurrence: US)
  Receive Date: 20231025
  Receipt Date: 20231030
  Transmission Date: 20240109
  Serious: No
  Sender: FDA-Public Use
  Company Number: US-SANOFI-01808160

PATIENT
  Age: 79 Year
  Sex: Male

DRUGS (1)
  1. LANTUS SOLOSTAR [Suspect]
     Active Substance: INSULIN GLARGINE

REACTIONS (2)
  - Blood glucose decreased [Unknown]
  - Device mechanical issue [Unknown]
